FAERS Safety Report 10186368 (Version 1)
Quarter: 2014Q2

REPORT INFORMATION
  Report Type: Spontaneous
  Country: US (occurrence: US)
  Receive Date: 20140521
  Receipt Date: 20140521
  Transmission Date: 20141212
  Serious: No
  Sender: FDA-Public Use
  Company Number: US-ASTRAZENECA-2013SE74096

PATIENT
  Age: 81 Year
  Sex: Female
  Weight: 49 kg

DRUGS (11)
  1. PULMICORT RESPULES [Suspect]
     Indication: PULMONARY FIBROSIS
     Dosage: 0.5 MGS/2 ML BID
     Route: 055
     Dates: start: 201308
  2. BABY ASPIRIN [Concomitant]
     Dosage: NOT REPORTED NR
     Route: 048
  3. VITAMIN D [Concomitant]
     Dosage: NOT REPORTED NR
     Route: 048
  4. SIMVUSTATIN [Concomitant]
     Indication: BLOOD CHOLESTEROL ABNORMAL
     Dosage: NOT REPORTED NR
     Route: 048
  5. PREDNISONE [Concomitant]
     Indication: LUNG DISORDER
     Dosage: NOT REPORTED NR
     Route: 048
  6. CALCIUM [Concomitant]
     Dosage: NOT REPORTED NR
     Route: 048
  7. GENERIC PLAVIX [Concomitant]
     Dosage: GENERIC
     Route: 048
  8. ALBUTEROL [Concomitant]
     Indication: LUNG DISORDER
     Dosage: NOT REPORTED NR
     Route: 055
  9. BROVANA [Concomitant]
     Indication: LUNG DISORDER
     Dosage: NOT REPORTED NR
     Route: 055
  10. IPRATROPIUM BROMIDE [Concomitant]
     Indication: LUNG DISORDER
     Dosage: NOT REPORTED NR
     Route: 055
  11. PAIN MEDICATION [Concomitant]
     Dosage: NOT REPORTED NR
     Route: 048

REACTIONS (6)
  - Memory impairment [Unknown]
  - Rhinorrhoea [Unknown]
  - Malaise [Unknown]
  - Abdominal pain upper [Unknown]
  - Cough [Unknown]
  - Circumstance or information capable of leading to medication error [Unknown]
